FAERS Safety Report 7868219-5 (Version None)
Quarter: 2011Q4

REPORT INFORMATION
  Report Type: 
  Country: None (occurrence: None)
  Receive Date: 20111028
  Receipt Date: 20111026
  Transmission Date: 20120403
  Serious: Yes (Hospitalization, Disabling, Other)
  Sender: FDA-Public Use
  Company Number: DE-MERCK-1108DEU00047

PATIENT
  Age: 54 Year
  Sex: Female
  Weight: 55 kg

DRUGS (12)
  1. VERAPAMIL [Concomitant]
     Route: 065
     Dates: start: 20040101
  2. BUDESONIDE [Concomitant]
     Indication: CHRONIC OBSTRUCTIVE PULMONARY DISEASE
     Route: 065
     Dates: start: 20040101
  3. SINGULAIR [Suspect]
     Route: 048
     Dates: start: 20110928, end: 20110101
  4. SINGULAIR [Suspect]
     Route: 048
     Dates: start: 20110928, end: 20110101
  5. FORMOTEROL FUMARATE [Concomitant]
     Indication: CHRONIC OBSTRUCTIVE PULMONARY DISEASE
     Route: 065
     Dates: start: 20040101
  6. SINGULAIR [Suspect]
     Indication: CHRONIC OBSTRUCTIVE PULMONARY DISEASE
     Route: 048
     Dates: start: 20110628, end: 20110901
  7. BUDESONIDE [Concomitant]
     Indication: ASTHMA
     Route: 065
     Dates: start: 20040101
  8. ALBUTEROL SULFATE [Concomitant]
     Route: 065
  9. SINGULAIR [Suspect]
     Indication: ASTHMA
     Route: 048
     Dates: start: 20110628, end: 20110901
  10. FORMOTEROL FUMARATE [Concomitant]
     Indication: ASTHMA
     Route: 065
     Dates: start: 20040101
  11. TIOTROPIUM BROMIDE [Concomitant]
     Indication: ASTHMA
     Route: 065
     Dates: start: 20040101
  12. TIOTROPIUM BROMIDE [Concomitant]
     Indication: CHRONIC OBSTRUCTIVE PULMONARY DISEASE
     Route: 065
     Dates: start: 20040101

REACTIONS (10)
  - DUPUYTREN'S CONTRACTURE [None]
  - CHRONIC OBSTRUCTIVE PULMONARY DISEASE [None]
  - PAIN IN EXTREMITY [None]
  - HALLUCINATION [None]
  - PARAESTHESIA [None]
  - DRUG INTOLERANCE [None]
  - BURNING SENSATION [None]
  - ALLERGIC GRANULOMATOUS ANGIITIS [None]
  - DISORIENTATION [None]
  - MUSCULOSKELETAL PAIN [None]
